FAERS Safety Report 15389018 (Version 1)
Quarter: 2018Q3

REPORT INFORMATION
  Report Type: Report from Study
  Country: None (occurrence: AU)
  Receive Date: 20180917
  Receipt Date: 20180917
  Transmission Date: 20181010
  Serious: Yes (Other)
  Sender: FDA-Public Use
  Company Number: AU-ABBVIE-18S-008-2485455-00

PATIENT
  Sex: Male

DRUGS (1)
  1. DUODOPA [Suspect]
     Active Substance: CARBIDOPA\LEVODOPA
     Indication: PARKINSON^S DISEASE
     Dosage: DUODOPA 100ML GEL CASSETTE 24HRLY INFUSION
     Route: 050
     Dates: start: 20160201

REACTIONS (2)
  - Bladder cancer [Recovering/Resolving]
  - Inguinal hernia [Unknown]

NARRATIVE: CASE EVENT DATE: 2018
